FAERS Safety Report 24891752 (Version 3)
Quarter: 2025Q2

REPORT INFORMATION
  Report Type: Spontaneous
  Country: US (occurrence: US)
  Receive Date: 20250127
  Receipt Date: 20250404
  Transmission Date: 20250716
  Serious: Yes (Other)
  Sender: MERCK SHARP AND DOHME
  Company Number: US-009507513-2501USA009474

PATIENT
  Age: 64 Year
  Sex: Female

DRUGS (1)
  1. KEYTRUDA [Suspect]
     Active Substance: PEMBROLIZUMAB
     Indication: Squamous cell carcinoma
     Dosage: DOSE DESCRIPTION : EVERY 3 WEEKS (Q3W)
     Route: 042
     Dates: start: 20250123, end: 20250123

REACTIONS (8)
  - Terminal state [Unknown]
  - Malignant neoplasm progression [Unknown]
  - Tremor [Unknown]
  - Dysphagia [Unknown]
  - Dry mouth [Unknown]
  - Pyrexia [Unknown]
  - Dyspnoea [Unknown]
  - Suicidal ideation [Unknown]

NARRATIVE: CASE EVENT DATE: 20250101
